FAERS Safety Report 5788100-5 (Version None)
Quarter: 2008Q2

REPORT INFORMATION
  Report Type: 
  Country: None (occurrence: None)
  Receive Date: 20080625
  Receipt Date: 20080609
  Transmission Date: 20081010
  Serious: No
  Sender: FDA-Public Use
  Company Number: US-BOEHRINGER INGELHEIM GMBH, GERMANY-2008-BP-08176BP

PATIENT
  Age: 68 Year
  Sex: Male

DRUGS (9)
  1. FLOMAX [Suspect]
     Indication: BENIGN PROSTATIC HYPERPLASIA
     Route: 048
     Dates: start: 20071101
  2. FLOMAX [Suspect]
     Indication: PROSTATOMEGALY
  3. NIASPAN [Concomitant]
  4. PRINIVIL [Concomitant]
  5. NORVASC [Concomitant]
  6. ATENOLOL [Concomitant]
  7. PLAVIX [Concomitant]
  8. PRAVACHOL [Concomitant]
  9. LIPITOR [Concomitant]

REACTIONS (1)
  - EJACULATION FAILURE [None]
